FAERS Safety Report 6039966-5 (Version None)
Quarter: 2009Q1

REPORT INFORMATION
  Report Type: 
  Country: None (occurrence: None)
  Receive Date: 20090116
  Receipt Date: 20071102
  Transmission Date: 20090719
  Serious: No
  Sender: FDA-Public Use
  Company Number: US-BRISTOL-MYERS SQUIBB COMPANY-13968227

PATIENT
  Age: 45 Year
  Sex: Male
  Weight: 107 kg

DRUGS (4)
  1. ABILIFY [Suspect]
     Indication: BIPOLAR DISORDER
     Route: 048
  2. ABILIFY [Suspect]
     Indication: BIPOLAR I DISORDER
     Route: 048
  3. TRILEPTAL [Concomitant]
  4. VALERIAN ROOT [Concomitant]

REACTIONS (1)
  - INSOMNIA [None]
